FAERS Safety Report 7628554-2 (Version None)
Quarter: 2011Q3

REPORT INFORMATION
  Report Type: 
  Country: None (occurrence: None)
  Receive Date: 20110720
  Receipt Date: 20110720
  Transmission Date: 20111222
  Serious: Yes (Other)
  Sender: FDA-Public Use
  Company Number: None

PATIENT
  Sex: Female
  Weight: 23.1 kg

DRUGS (2)
  1. TOPAMAX [Suspect]
     Indication: CONVULSION
     Dosage: 6 ML BID PO
     Route: 048
  2. KEPPRA [Suspect]
     Indication: CYTOMEGALOVIRUS INFECTION
     Dosage: 2.5 ML BID PO
     Route: 048
     Dates: start: 20090225

REACTIONS (3)
  - DRUG HYPERSENSITIVITY [None]
  - CONVULSION [None]
  - PRODUCT SUBSTITUTION ISSUE [None]
